FAERS Safety Report 22114898 (Version 1)
Quarter: 2023Q1

REPORT INFORMATION
  Report Type: Spontaneous
  Country: US (occurrence: US)
  Receive Date: 20230320
  Receipt Date: 20230320
  Transmission Date: 20230418
  Serious: No
  Sender: FDA-Public Use
  Company Number: US-AMGEN-USASP2023046406

PATIENT
  Sex: Male

DRUGS (3)
  1. REPATHA [Suspect]
     Active Substance: EVOLOCUMAB
     Indication: Arteriosclerosis
     Dosage: 140 MILLIGRAM, Q2WK
     Route: 058
     Dates: start: 20221115
  2. ALLOPURINOL [Concomitant]
     Active Substance: ALLOPURINOL
     Indication: Gout
  3. INDOMETHACIN [Concomitant]
     Active Substance: INDOMETHACIN
     Indication: Gout

REACTIONS (1)
  - Gout [Unknown]
